FAERS Safety Report 8542334-5 (Version None)
Quarter: 2012Q3

REPORT INFORMATION
  Report Type: 
  Country: None (occurrence: None)
  Receive Date: 20120726
  Receipt Date: 20110901
  Transmission Date: 20120928
  Serious: No
  Sender: FDA-Public Use
  Company Number: US-ASTRAZENECA-2011SE47358

PATIENT
  Sex: Female

DRUGS (7)
  1. NEXIUM [Concomitant]
  2. SYMBICORT [Concomitant]
  3. HYDROXYZINE [Concomitant]
  4. SEROQUEL XR [Suspect]
     Indication: DEPRESSION
     Route: 048
  5. ALPRAZOLAM [Concomitant]
  6. ATENOLOL [Concomitant]
  7. BUSPAR [Concomitant]

REACTIONS (2)
  - HANGOVER [None]
  - INSOMNIA [None]
